FAERS Safety Report 9024086 (Version 2)
Quarter: 2013Q3

REPORT INFORMATION
  Report Type: Spontaneous
  Country: US (occurrence: US)
  Receive Date: 20130122
  Receipt Date: 20130905
  Transmission Date: 20140515
  Serious: No
  Sender: FDA-Public Use
  Company Number: US-BIOGENIDEC-2013BI003602

PATIENT
  Sex: Female

DRUGS (1)
  1. TYSABRI [Suspect]
     Indication: MULTIPLE SCLEROSIS
     Route: 042
     Dates: start: 20111109

REACTIONS (6)
  - Fall [Recovered/Resolved]
  - Musculoskeletal disorder [Recovered/Resolved]
  - General symptom [Unknown]
  - Memory impairment [Unknown]
  - Frustration [Unknown]
  - Fatigue [Unknown]
